FAERS Safety Report 10102959 (Version 2)
Quarter: 2014Q2

REPORT INFORMATION
  Report Type: Spontaneous
  Country: US (occurrence: US)
  Receive Date: 20140424
  Receipt Date: 20140424
  Transmission Date: 20141212
  Serious: No
  Sender: FDA-Public Use
  Company Number: US-BRISTOL-MYERS SQUIBB COMPANY-19991009

PATIENT
  Age: 78 Year
  Sex: Male
  Weight: 83.9 kg

DRUGS (4)
  1. ELIQUIS [Suspect]
     Dates: start: 201311
  2. FLECAINIDE [Concomitant]
     Indication: ATRIAL FIBRILLATION
     Dates: start: 201311
  3. RAMIPRIL [Concomitant]
     Indication: BLOOD PRESSURE
  4. FLOMAX [Concomitant]

REACTIONS (1)
  - Blood urine present [Recovered/Resolved]
